FAERS Safety Report 7739678-3 (Version None)
Quarter: 2011Q3

REPORT INFORMATION
  Report Type: 
  Country: None (occurrence: None)
  Receive Date: 20110909
  Receipt Date: 20110809
  Transmission Date: 20111222
  Serious: Yes (Hospitalization)
  Sender: FDA-Public Use
  Company Number: US-AMGEN-USASP2011001458

PATIENT
  Sex: Female

DRUGS (1)
  1. ENBREL [Suspect]
     Indication: PSORIASIS
     Dates: start: 20050606

REACTIONS (4)
  - PSORIASIS [None]
  - GASTRIC BYPASS [None]
  - INJECTION SITE MASS [None]
  - INJECTION SITE ERYTHEMA [None]
